FAERS Safety Report 7550055-0 (Version None)
Quarter: 2011Q2

REPORT INFORMATION
  Report Type: 
  Country: None (occurrence: None)
  Receive Date: 20110615
  Receipt Date: 20110609
  Transmission Date: 20111010
  Serious: Yes (Hospitalization, Other)
  Sender: FDA-Public Use
  Company Number: CHPA2011CA07812

PATIENT
  Age: 29 Year
  Sex: Male

DRUGS (3)
  1. HABITROL [Suspect]
     Indication: SMOKING CESSATION THERAPY
     Dosage: 21 MG, QD
     Route: 062
     Dates: start: 20110602, end: 20110609
  2. INSULIN [Concomitant]
     Indication: DIABETES MELLITUS
     Dosage: UNK, UNK
  3. HABITROL [Suspect]
     Route: 062

REACTIONS (4)
  - INCORRECT DOSE ADMINISTERED [None]
  - HYPOGLYCAEMIA [None]
  - CONVULSION [None]
  - OVERDOSE [None]
